FAERS Safety Report 8681564 (Version 2)
Quarter: 2013Q1

REPORT INFORMATION
  Report Type: Spontaneous
  Country: BR (occurrence: BR)
  Receive Date: 20120725
  Receipt Date: 20130321
  Transmission Date: 20140127
  Serious: Yes (Hospitalization, Other)
  Sender: FDA-Public Use
  Company Number: PHHY2012BR040605

PATIENT
  Sex: Male

DRUGS (4)
  1. MYFORTIC [Suspect]
     Indication: RENAL TRANSPLANT
     Dosage: 360 MG (1 TABLET IN THE MORNING AND 1 TABLET AT NIGHT)
     Route: 048
  2. TACROLIMUS [Concomitant]
     Indication: RENAL TRANSPLANT
     Dosage: 4 DF, 2 DF IN THE MORNING AND 2 DF AT NIGHT
     Route: 048
  3. PREDNISONE [Concomitant]
     Dosage: 1 DF, QD
     Route: 048
  4. OMEPRAZOLE [Concomitant]
     Dosage: 1 DF, QD

REACTIONS (5)
  - Papilloma viral infection [Not Recovered/Not Resolved]
  - Blood creatinine abnormal [Recovered/Resolved]
  - Diarrhoea [Recovered/Resolved]
  - Pyrexia [Recovered/Resolved]
  - Flatulence [Recovered/Resolved]
